FAERS Safety Report 22634361 (Version 1)
Quarter: 2023Q2

REPORT INFORMATION
  Report Type: Spontaneous
  Country: FR (occurrence: None)
  Receive Date: 20230623
  Receipt Date: 20230623
  Transmission Date: 20230722
  Serious: Yes (Life-Threatening)
  Sender: FDA-Public Use
  Company Number: 2023A140753

PATIENT
  Age: 3 Month
  Sex: Female
  Weight: 5.4 kg

DRUGS (1)
  1. ESOMEPRAZOLE [Suspect]
     Active Substance: ESOMEPRAZOLE
     Indication: Gastrooesophageal reflux disease
     Route: 048
     Dates: start: 20230301, end: 20230311

REACTIONS (1)
  - Brief resolved unexplained event [Recovered/Resolved]

NARRATIVE: CASE EVENT DATE: 20230311
